FAERS Safety Report 12110642 (Version 4)
Quarter: 2016Q2

REPORT INFORMATION
  Report Type: Spontaneous
  Country: US (occurrence: US)
  Receive Date: 20160224
  Receipt Date: 20160503
  Transmission Date: 20160815
  Serious: No
  Sender: FDA-Public Use
  Company Number: US-PFIZER INC-2016106656

PATIENT
  Age: 68 Year
  Sex: Female
  Weight: 79 kg

DRUGS (22)
  1. CALCIUM [Concomitant]
     Active Substance: CALCIUM
     Dosage: 500 MG, 3X/DAY
     Route: 048
     Dates: start: 20120607
  2. LISINOPRIL. [Concomitant]
     Active Substance: LISINOPRIL
     Dosage: 2.5 MG, 1X/DAY
     Route: 048
     Dates: start: 20150902
  3. BENZONATATE. [Concomitant]
     Active Substance: BENZONATATE
     Indication: COUGH
     Dosage: 200 MG, AS NEEDED [1 PO TID]
     Route: 048
     Dates: start: 20151027
  4. ZANTAC [Concomitant]
     Active Substance: RANITIDINE HYDROCHLORIDE
     Dosage: 300 MG, 2X/DAY
     Route: 048
     Dates: start: 20120305
  5. HYDROCORTISONE. [Concomitant]
     Active Substance: HYDROCORTISONE
     Indication: PRURITUS
     Dosage: UNK, 2X/DAY [APPLY BID TO AREAS THAT ITCH]
     Route: 061
     Dates: start: 20151216
  6. BECLOMETASONE DIPROPIONATE [Concomitant]
     Active Substance: BECLOMETHASONE DIPROPIONATE
     Dosage: UNK (2 INHALATIONS PER NOSTRIL PER DAY, MAX 4 INHALATIONS PER DAY)
     Route: 045
     Dates: start: 20151014
  7. ASPIRIN 81 [Concomitant]
     Active Substance: ASPIRIN
     Dosage: 81 MG, 1X/DAY
     Route: 048
     Dates: start: 20130318
  8. SPIRIVA [Concomitant]
     Active Substance: TIOTROPIUM BROMIDE MONOHYDRATE
     Dosage: UNK UNK, 1X/DAY [1 INH, QD; 18 MCG CAPSULES]
     Dates: start: 20140528
  9. ALBUTEROL. [Concomitant]
     Active Substance: ALBUTEROL
     Indication: WHEEZING
  10. PROAIR HFA [Concomitant]
     Active Substance: ALBUTEROL SULFATE
     Dosage: UNK UNK, AS NEEDED (108 MCG/ACT AERS) (INH Q4H PRN)
     Dates: start: 20130513
  11. BREO ELLIPTA [Concomitant]
     Active Substance: FLUTICASONE FUROATE\VILANTEROL TRIFENATATE
     Dosage: UNK UNK, DAILY (100-25 MCG/INH AEPB) (FLUTICASONE FUROATE 100 MCG, VILANTEROL TRIFENATATE 25 MCG)
     Dates: start: 20150603
  12. CITALOPRAM HYDROBROMIDE. [Concomitant]
     Active Substance: CITALOPRAM HYDROBROMIDE
     Dosage: 20 MG, 1X/DAY [1 TAB DAILY]
     Route: 048
     Dates: start: 20150625
  13. LYRICA [Suspect]
     Active Substance: PREGABALIN
     Indication: OSTEOPOROSIS
     Dosage: 150 MG, 2X/DAY
     Route: 048
     Dates: start: 2015
  14. FUROSEMIDE. [Concomitant]
     Active Substance: FUROSEMIDE
     Dosage: 40 MG, 1X/DAY [1 TAB DAILY IN MORNING]
     Route: 048
     Dates: start: 20150825
  15. KLOR-CON M10 [Concomitant]
     Active Substance: POTASSIUM CHLORIDE
     Dosage: 10 MEQ, 1X/DAY [1 TAB DAILY]
     Route: 048
     Dates: start: 20150825
  16. TRAMADOL HCL [Concomitant]
     Active Substance: TRAMADOL HYDROCHLORIDE
     Dosage: 50 MG, AS NEEDED (Q 6 HOURS)
     Route: 048
     Dates: start: 20151002
  17. NAPROXEN. [Concomitant]
     Active Substance: NAPROXEN
     Dosage: 500 MG, 2X/DAY
     Route: 048
     Dates: start: 20120305
  18. ALBUTEROL. [Concomitant]
     Active Substance: ALBUTEROL
     Indication: CHRONIC OBSTRUCTIVE PULMONARY DISEASE
     Dosage: UNK [NEBULIZER AIR TUBE/PLUGS MISC (RESPIRATORY THERAPY SUPPLIES), USE WITH ALBUTEROL]
     Dates: start: 20150916
  19. LYRICA [Suspect]
     Active Substance: PREGABALIN
     Indication: NEUROPATHY PERIPHERAL
     Dosage: 150 MG, 2X/DAY
     Route: 048
     Dates: start: 20140620
  20. ALBUTEROL SULFATE. [Concomitant]
     Active Substance: ALBUTEROL SULFATE
     Dosage: UNK, AS NEEDED (0.083% NEBU) (UNIT DOSE QID AND Q 2 HRS PRN)
     Dates: start: 20150916
  21. DIPHENOXYLATE HYDROCHLORIDE AND ATROPINE SULFATE [Concomitant]
     Active Substance: ATROPINE SULFATE\DIPHENOXYLATE HYDROCHLORIDE
     Indication: DIARRHOEA
     Dosage: 2 DF, AS NEEDED(ATROPINE SULFATE 0.025 MG, DIPHENOXYLATE HYDROCHLORIDE 2.5 MG)(2 TAB FOUR TIME DAILY
     Route: 048
     Dates: start: 20151002
  22. PROLIA [Concomitant]
     Active Substance: DENOSUMAB
     Dosage: UNK UNK, 1X/DAY [60 MG/ML; SQ Q 6 MO]
     Route: 058
     Dates: start: 20151002

REACTIONS (7)
  - Weight decreased [Unknown]
  - Bone pain [Recovered/Resolved]
  - Drug dose omission [Unknown]
  - Feeling abnormal [Unknown]
  - Decreased appetite [Unknown]
  - Insomnia [Unknown]
  - Product use issue [Recovered/Resolved]

NARRATIVE: CASE EVENT DATE: 2015
